FAERS Safety Report 20206487 (Version 1)
Quarter: 2021Q4

REPORT INFORMATION
  Report Type: Spontaneous
  Country: US (occurrence: None)
  Receive Date: 20211218
  Receipt Date: 20211218
  Transmission Date: 20220304
  Serious: Yes (Disabling)
  Sender: FDA-Public Use
  Company Number: None

PATIENT
  Age: 70 Year
  Sex: Male
  Weight: 84.6 kg

DRUGS (1)
  1. LEVOFLOXACIN [Suspect]
     Active Substance: LEVOFLOXACIN
     Indication: Diverticulitis
     Dosage: OTHER QUANTITY : 10 TABLET(S);?FREQUENCY : DAILY;?
     Route: 048
     Dates: start: 20211124, end: 20211128

REACTIONS (6)
  - Tendon pain [None]
  - Inflammation [None]
  - Joint noise [None]
  - Tendon rupture [None]
  - Peripheral swelling [None]
  - Limb discomfort [None]

NARRATIVE: CASE EVENT DATE: 20211127
